FAERS Safety Report 23891926 (Version 1)
Quarter: 2024Q2

REPORT INFORMATION
  Report Type: Spontaneous
  Country: US (occurrence: None)
  Receive Date: 20240524
  Receipt Date: 20240524
  Transmission Date: 20240716
  Serious: No
  Sender: FDA-Public Use
  Company Number: US-ROCHE-3524642

PATIENT
  Sex: Female

DRUGS (1)
  1. ACTEMRA [Suspect]
     Active Substance: TOCILIZUMAB
     Indication: Product used for unknown indication
     Route: 065

REACTIONS (6)
  - Injection site vesicles [Unknown]
  - Erythema [Unknown]
  - Pruritus [Unknown]
  - Injection site erythema [Unknown]
  - Skin discolouration [Unknown]
  - Macule [Unknown]
